FAERS Safety Report 7738770-7 (Version None)
Quarter: 2011Q3

REPORT INFORMATION
  Report Type: 
  Country: None (occurrence: None)
  Receive Date: 20110908
  Receipt Date: 20110831
  Transmission Date: 20111222
  Serious: Yes (Other)
  Sender: FDA-Public Use
  Company Number: US-AMGEN-USASP2011041638

PATIENT
  Sex: Male

DRUGS (3)
  1. ENBREL [Suspect]
     Indication: PSORIATIC ARTHROPATHY
     Dosage: 50 MG, QWK
     Dates: start: 20040801
  2. HUMIRA [Concomitant]
     Indication: PSORIATIC ARTHROPATHY
  3. ENBREL [Suspect]
     Dates: start: 20040801

REACTIONS (7)
  - RECTAL HAEMORRHAGE [None]
  - INJECTION SITE HAEMATOMA [None]
  - ABDOMINAL PAIN [None]
  - DIVERTICULUM [None]
  - GASTROINTESTINAL HAEMORRHAGE [None]
  - MALAISE [None]
  - HYPERSENSITIVITY [None]
